FAERS Safety Report 6093637-8 (Version None)
Quarter: 2009Q1

REPORT INFORMATION
  Report Type: 
  Country: None (occurrence: None)
  Receive Date: 20090226
  Receipt Date: 20090219
  Transmission Date: 20090719
  Serious: Yes (Death)
  Sender: FDA-Public Use
  Company Number: US-WATSON-2009-01244

PATIENT
  Age: 60 Year
  Sex: Female

DRUGS (1)
  1. CARTIA XT (WATSON LABORATORIES) [Suspect]
     Indication: HYPERTENSION
     Dosage: 240 MG, DAILY
     Route: 048

REACTIONS (1)
  - DEATH [None]
